FAERS Safety Report 17103453 (Version 1)
Quarter: 2019Q4

REPORT INFORMATION
  Report Type: Spontaneous
  Country: IN (occurrence: IN)
  Receive Date: 20191203
  Receipt Date: 20191203
  Transmission Date: 20200122
  Serious: Yes (Other)
  Sender: FDA-Public Use
  Company Number: IN-LUPIN PHARMACEUTICALS INC.-2019-07874

PATIENT
  Age: 72 Year
  Sex: Male

DRUGS (4)
  1. SERTRALINE [Suspect]
     Active Substance: SERTRALINE HYDROCHLORIDE
     Indication: COGNITIVE DISORDER
  2. RISPERIDONE. [Concomitant]
     Active Substance: RISPERIDONE
     Indication: COGNITIVE DISORDER
  3. SERTRALINE [Suspect]
     Active Substance: SERTRALINE HYDROCHLORIDE
     Indication: MAJOR DEPRESSION
     Dosage: 100 MILLIGRAM, QD
     Route: 065
  4. RISPERIDONE. [Concomitant]
     Active Substance: RISPERIDONE
     Indication: MAJOR DEPRESSION
     Dosage: 2 MILLIGRAM, QD
     Route: 065

REACTIONS (1)
  - Delirium [Recovered/Resolved]
